APPROVED DRUG PRODUCT: NORTREL 1/35-28
Active Ingredient: ETHINYL ESTRADIOL; NORETHINDRONE
Strength: 0.035MG;1MG
Dosage Form/Route: TABLET;ORAL-28
Application: A072696 | Product #001 | TE Code: AB
Applicant: BARR LABORATORIES LLC (AN INDIRECT WHOLLY OWNED SUB OF TEVA PHARMACEUTICALS USA INC)
Approved: Feb 28, 1992 | RLD: No | RS: Yes | Type: RX